FAERS Safety Report 5740475-9 (Version None)
Quarter: 2008Q2

REPORT INFORMATION
  Report Type: 
  Country: None (occurrence: None)
  Receive Date: 20080516
  Receipt Date: 20080507
  Transmission Date: 20081010
  Serious: Yes (Other)
  Sender: FDA-Public Use
  Company Number: TW-ASTRAZENECA-2008AP03583

PATIENT
  Age: 22 Year
  Sex: Female
  Weight: 79 kg

DRUGS (1)
  1. SEROQUEL [Suspect]
     Indication: SCHIZOPHRENIA
     Route: 048
     Dates: start: 20030223, end: 20030312

REACTIONS (2)
  - CHOLELITHIASIS [None]
  - HEPATIC FUNCTION ABNORMAL [None]
